FAERS Safety Report 9443428 (Version 3)
Quarter: 2014Q1

REPORT INFORMATION
  Report Type: Spontaneous
  Country: JP (occurrence: JP)
  Receive Date: 20130806
  Receipt Date: 20140314
  Transmission Date: 20141002
  Serious: Yes (Other)
  Sender: FDA-Public Use
  Company Number: PHHY2013JP084086

PATIENT
  Age: 68 Year
  Sex: Male

DRUGS (5)
  1. ZOMETA [Suspect]
     Indication: METASTASES TO BONE
     Dosage: 4 MG, (PER ADMINISTRATION)
     Route: 041
     Dates: start: 20100817, end: 20121204
  2. RANMARK [Suspect]
     Dosage: UNK UKN, UNK
     Route: 058
  3. HARNAL [Concomitant]
     Dosage: UNK UKN, UNK
     Route: 048
  4. DECADRAN [Concomitant]
     Dosage: UNK UKN, UNK
  5. AMLODIN [Concomitant]
     Dosage: UNK UKN, UNK

REACTIONS (7)
  - Osteonecrosis of jaw [Not Recovered/Not Resolved]
  - Gingivitis [Unknown]
  - Bone lesion [Unknown]
  - Purulent discharge [Unknown]
  - Exposed bone in jaw [Unknown]
  - Peripheral nerve palsy [Unknown]
  - Impaired healing [Unknown]
